APPROVED DRUG PRODUCT: GEMCITABINE HYDROCHLORIDE
Active Ingredient: GEMCITABINE HYDROCHLORIDE
Strength: 200MG/5.26ML (38MG/ML)
Dosage Form/Route: INJECTABLE;INJECTION
Application: A210383 | Product #001 | TE Code: AP
Applicant: NOVAST LABORATORIES LTD
Approved: Feb 14, 2019 | RLD: No | RS: No | Type: RX